FAERS Safety Report 5340134-0 (Version None)
Quarter: 2007Q2

REPORT INFORMATION
  Report Type: 
  Country: None (occurrence: None)
  Receive Date: 20070524
  Receipt Date: 20070514
  Transmission Date: 20071010
  Serious: Yes (Other)
  Sender: FDA-Public Use
  Company Number: CHNY2007DE01906

PATIENT
  Age: 56 Year
  Sex: Male
  Weight: 85 kg

DRUGS (3)
  1. LAMISIL [Suspect]
     Indication: TINEA PEDIS
     Dosage: TOPICAL
     Route: 061
     Dates: start: 20070301, end: 20070301
  2. LAMISIL [Suspect]
     Indication: TINEA PEDIS
     Dosage: TOPICAL
     Route: 061
     Dates: start: 20070423, end: 20070423
  3. OMEPRAZOLE [Concomitant]

REACTIONS (5)
  - APPLICATION SITE REACTION [None]
  - BURNING SENSATION [None]
  - DISEASE RECURRENCE [None]
  - HYPOAESTHESIA [None]
  - TINEA PEDIS [None]
